FAERS Safety Report 9247091 (Version 1)
Quarter: 2013Q2

REPORT INFORMATION
  Report Type: Spontaneous
  Country: US (occurrence: US)
  Receive Date: 20130423
  Receipt Date: 20130423
  Transmission Date: 20140414
  Serious: No
  Sender: FDA-Public Use
  Company Number: US-BIOGENIDEC-2013BI034906

PATIENT
  Age: 21 Year
  Sex: Female

DRUGS (2)
  1. AVONEX [Suspect]
     Indication: MULTIPLE SCLEROSIS
     Route: 030
  2. AVONEX [Suspect]
     Indication: MULTIPLE SCLEROSIS
     Route: 030

REACTIONS (7)
  - Feeling cold [Unknown]
  - Piloerection [Unknown]
  - Nervousness [Recovered/Resolved]
  - Chills [Unknown]
  - Depressed mood [Not Recovered/Not Resolved]
  - Pyrexia [Unknown]
  - Headache [Unknown]
